FAERS Safety Report 12493899 (Version 1)
Quarter: 2016Q2

REPORT INFORMATION
  Report Type: Spontaneous
  Country: US (occurrence: US)
  Receive Date: 20160623
  Receipt Date: 20160623
  Transmission Date: 20160815
  Serious: No
  Sender: FDA-Public Use
  Company Number: US-VIVUS-2015V1000471

PATIENT
  Age: 67 Year
  Sex: Male
  Weight: 78.54 kg

DRUGS (2)
  1. STENDRA [Suspect]
     Active Substance: AVANAFIL
     Indication: ERECTILE DYSFUNCTION
     Route: 048
     Dates: start: 20150920
  2. STENDRA [Suspect]
     Active Substance: AVANAFIL
     Indication: ERECTILE DYSFUNCTION
     Route: 048
     Dates: start: 20150920

REACTIONS (4)
  - Inappropriate schedule of drug administration [Recovered/Resolved]
  - Overdose [Recovered/Resolved]
  - Drug ineffective [Unknown]
  - Expired product administered [Recovered/Resolved]

NARRATIVE: CASE EVENT DATE: 20150920
